FAERS Safety Report 13770502 (Version 2)
Quarter: 2017Q3

REPORT INFORMATION
  Report Type: Spontaneous
  Country: FR (occurrence: FR)
  Receive Date: 20170719
  Receipt Date: 20170728
  Transmission Date: 20171127
  Serious: Yes (Other)
  Sender: FDA-Public Use
  Company Number: FR-AMGEN-FRASP2017108639

PATIENT
  Age: 65 Year
  Sex: Male

DRUGS (1)
  1. ENBREL [Suspect]
     Active Substance: ETANERCEPT
     Indication: PRODUCT USED FOR UNKNOWN INDICATION
     Dosage: UNK
     Route: 065
     Dates: start: 20170619, end: 20170626

REACTIONS (3)
  - Recall phenomenon [Recovered/Resolved]
  - Injection site inflammation [Recovered/Resolved]
  - Injection site vesicles [Recovered/Resolved]

NARRATIVE: CASE EVENT DATE: 20170627
